FAERS Safety Report 7811408-6 (Version None)
Quarter: 2011Q4

REPORT INFORMATION
  Report Type: 
  Country: None (occurrence: None)
  Receive Date: 20111013
  Receipt Date: 20111007
  Transmission Date: 20120403
  Serious: Yes (Other)
  Sender: FDA-Public Use
  Company Number: US-BRISTOL-MYERS SQUIBB COMPANY-16143182

PATIENT
  Sex: Female

DRUGS (1)
  1. ONGLYZA [Suspect]
     Dosage: COUPLE WEEKS AGO

REACTIONS (1)
  - VASCULITIS [None]
